FAERS Safety Report 7362564-8 (Version None)
Quarter: 2011Q1

REPORT INFORMATION
  Report Type: 
  Country: None (occurrence: None)
  Receive Date: 20110320
  Receipt Date: 20100803
  Transmission Date: 20110831
  Serious: Yes (Hospitalization, Other)
  Sender: FDA-Public Use
  Company Number: US-BAYER-201012144NA

PATIENT
  Sex: Female
  Weight: 91 kg

DRUGS (8)
  1. OCELLA [Suspect]
     Indication: MENSTRUAL CYCLE MANAGEMENT
  2. OCELLA [Suspect]
     Indication: CONTRACEPTION
  3. YAZ [Suspect]
     Indication: PRODUCT USED FOR UNKNOWN INDICATION
     Route: 048
  4. UNCODEABLE ^UNCLASSIFIABLE^ [Concomitant]
     Indication: PREMENSTRUAL SYNDROME
  5. OCELLA [Suspect]
     Indication: PREMENSTRUAL SYNDROME
     Route: 048
     Dates: start: 20080814, end: 20090324
  6. ADVIL LIQUI-GELS [Concomitant]
     Indication: MENSTRUAL CYCLE MANAGEMENT
  7. UNCODEABLE ^UNCLASSIFIABLE^ [Concomitant]
  8. YASMIN [Suspect]
     Indication: PRODUCT USED FOR UNKNOWN INDICATION
     Dosage: UNK UNK, QD
     Route: 048
     Dates: start: 20050101, end: 20080101

REACTIONS (4)
  - CHOLELITHIASIS [None]
  - ABDOMINAL PAIN UPPER [None]
  - CHOLECYSTITIS CHRONIC [None]
  - INJURY [None]
